FAERS Safety Report 6812056-7 (Version None)
Quarter: 2010Q2

REPORT INFORMATION
  Report Type: 
  Country: None (occurrence: None)
  Receive Date: 20100628
  Receipt Date: 20100608
  Transmission Date: 20101027
  Serious: Yes (Other)
  Sender: FDA-Public Use
  Company Number: FK0201000226

PATIENT
  Age: 74 Year
  Sex: Female

DRUGS (7)
  1. FLUOROURACIL [Suspect]
     Indication: COLORECTAL CANCER
     Dosage: 1000 MG/M2, 12 CYCLES AT 15DAYS INTERVALS
  2. LEUXOVORIN CALCIUM (MANUFACTURER UNKNOWN) (LEUCOVORIN CALCIUM) [Suspect]
     Indication: COLORECTAL CANCER
     Dosage: 200 MG/M2, 12 CYCLES AT 15DAYS INTERVAL)
  3. CANDESARTAN CILEXETIL [Concomitant]
  4. AMLODIPINE [Concomitant]
  5. ATORVASTATIN CALCIUM [Concomitant]
  6. LEVOTHYROXIN (LEVOTHYROXINE SODIUM) (LEVOTHYROXINE SODIUM) [Concomitant]
  7. OXALIPLATIN [Suspect]
     Indication: COLORECTAL CANCER
     Dosage: 85 MG/M2, 12 CYCLES AT 15 DAYS INTERVAL

REACTIONS (4)
  - CARBON MONOXIDE DIFFUSING CAPACITY DECREASED [None]
  - MYOPATHY [None]
  - ORGANISING PNEUMONIA [None]
  - RESTRICTIVE PULMONARY DISEASE [None]
